FAERS Safety Report 20149261 (Version 11)
Quarter: 2023Q2

REPORT INFORMATION
  Report Type: Spontaneous
  Country: CA (occurrence: CA)
  Receive Date: 20211205
  Receipt Date: 20230606
  Transmission Date: 20230722
  Serious: Yes (Life-Threatening, Hospitalization, Other)
  Sender: FDA-Public Use
  Company Number: CA-NOVARTISPH-NVSC2021CA274520

PATIENT
  Age: 77 Year
  Sex: Female

DRUGS (443)
  1. CARBAMAZEPINE [Suspect]
     Active Substance: CARBAMAZEPINE
     Indication: Seizure
     Dosage: 200 MG, QD
     Route: 065
  2. CARBAMAZEPINE [Suspect]
     Active Substance: CARBAMAZEPINE
     Indication: Seizure prophylaxis
     Dosage: 500 MG, QD
     Route: 065
  3. CARBAMAZEPINE [Suspect]
     Active Substance: CARBAMAZEPINE
     Indication: Fibromyalgia
     Dosage: 100 MG, QD
     Route: 065
  4. CARBAMAZEPINE [Suspect]
     Active Substance: CARBAMAZEPINE
     Dosage: 200 MG, QD
     Route: 065
  5. CARBAMAZEPINE [Suspect]
     Active Substance: CARBAMAZEPINE
     Dosage: 200 MG, QD
     Route: 065
  6. CARBAMAZEPINE [Suspect]
     Active Substance: CARBAMAZEPINE
     Dosage: 200 MG, QD
     Route: 065
  7. CARBAMAZEPINE [Suspect]
     Active Substance: CARBAMAZEPINE
     Dosage: 200 MG, QD
     Route: 065
  8. CARBAMAZEPINE [Suspect]
     Active Substance: CARBAMAZEPINE
     Dosage: 200 MG, QD
     Route: 065
  9. CARBAMAZEPINE [Suspect]
     Active Substance: CARBAMAZEPINE
     Dosage: 500 MG, QD
     Route: 065
  10. CARBAMAZEPINE [Suspect]
     Active Substance: CARBAMAZEPINE
     Dosage: 500 MG, QD
     Route: 065
  11. CARBAMAZEPINE [Suspect]
     Active Substance: CARBAMAZEPINE
     Dosage: 100 MG, QD
     Route: 065
  12. CARBAMAZEPINE [Suspect]
     Active Substance: CARBAMAZEPINE
     Dosage: 100 MG, QD
     Route: 065
  13. CARBAMAZEPINE [Suspect]
     Active Substance: CARBAMAZEPINE
     Dosage: 100 MG (1 EVERY 12 HOURS)
     Route: 065
  14. CARBAMAZEPINE [Suspect]
     Active Substance: CARBAMAZEPINE
     Dosage: 200 MG (1 EVERY 12 HOURS)
     Route: 065
  15. CARBAMAZEPINE [Suspect]
     Active Substance: CARBAMAZEPINE
     Dosage: 10 MG, QD
     Route: 065
  16. CARBAMAZEPINE [Suspect]
     Active Substance: CARBAMAZEPINE
     Dosage: UNK
     Route: 065
  17. CARBAMAZEPINE [Suspect]
     Active Substance: CARBAMAZEPINE
     Dosage: 2 DOSAGE FORM  (1 EVERY 12 HOURS)
     Route: 065
  18. CARBAMAZEPINE [Suspect]
     Active Substance: CARBAMAZEPINE
     Dosage: 1 DOSAGE FORM  (1 EVERY 12 HOURS)
     Route: 065
  19. CARBAMAZEPINE [Suspect]
     Active Substance: CARBAMAZEPINE
     Dosage: 100 MG
     Route: 065
  20. CARBAMAZEPINE [Suspect]
     Active Substance: CARBAMAZEPINE
     Dosage: UNK
     Route: 065
  21. CARBAMAZEPINE [Suspect]
     Active Substance: CARBAMAZEPINE
     Dosage: UNK
     Route: 065
  22. CARBAMAZEPINE [Suspect]
     Active Substance: CARBAMAZEPINE
     Dosage: UNK
     Route: 065
  23. FUROSEMIDE [Suspect]
     Active Substance: FUROSEMIDE
     Indication: Oedema
     Dosage: 40 MG, QD
     Route: 065
  24. FUROSEMIDE [Suspect]
     Active Substance: FUROSEMIDE
     Indication: Coronary artery disease
     Dosage: 40 MG, QD
     Route: 065
  25. FUROSEMIDE [Suspect]
     Active Substance: FUROSEMIDE
     Indication: Chest pain
     Dosage: 40 MG, QD
     Route: 065
  26. FUROSEMIDE [Suspect]
     Active Substance: FUROSEMIDE
     Indication: Angina pectoris
     Dosage: 40 MG, QD
     Route: 065
  27. FUROSEMIDE [Suspect]
     Active Substance: FUROSEMIDE
     Dosage: UNK
     Route: 065
  28. FUROSEMIDE [Suspect]
     Active Substance: FUROSEMIDE
     Dosage: 40 MG, QD
     Route: 065
  29. FUROSEMIDE [Suspect]
     Active Substance: FUROSEMIDE
     Dosage: UNK
     Route: 065
  30. FUROSEMIDE [Suspect]
     Active Substance: FUROSEMIDE
     Dosage: 40 MG, Q8H
     Route: 065
  31. NITROGLYCERIN [Suspect]
     Active Substance: NITROGLYCERIN
     Indication: Angina pectoris
     Dosage: 0.4 MG
     Route: 065
  32. NITROGLYCERIN [Suspect]
     Active Substance: NITROGLYCERIN
     Indication: Coronary artery disease
     Dosage: UNK
     Route: 065
  33. NITROGLYCERIN [Suspect]
     Active Substance: NITROGLYCERIN
     Indication: Chest pain
     Dosage: UNK, QD (1 EVERY 24 HOURS))
     Route: 065
  34. NITROGLYCERIN [Suspect]
     Active Substance: NITROGLYCERIN
     Dosage: 0.4 MG
     Route: 065
  35. NITROGLYCERIN [Suspect]
     Active Substance: NITROGLYCERIN
     Dosage: UNK
     Route: 065
  36. NITROGLYCERIN [Suspect]
     Active Substance: NITROGLYCERIN
     Dosage: UNK
     Route: 065
  37. NITROGLYCERIN [Suspect]
     Active Substance: NITROGLYCERIN
     Dosage: 0.4 MG
     Route: 065
  38. NITROGLYCERIN [Suspect]
     Active Substance: NITROGLYCERIN
     Dosage: 1 DOSAGE FORM, Q24H
     Route: 065
  39. NITROGLYCERIN [Suspect]
     Active Substance: NITROGLYCERIN
     Dosage: 6 MG, Q24H
     Route: 061
  40. NITROGLYCERIN [Suspect]
     Active Substance: NITROGLYCERIN
     Dosage: 6 MG, Q24H
     Route: 061
  41. NITROGLYCERIN [Suspect]
     Active Substance: NITROGLYCERIN
     Dosage: 0.6 MG, Q24H
     Route: 065
  42. NITROGLYCERIN [Suspect]
     Active Substance: NITROGLYCERIN
     Dosage: 0.4 MG, Q24H
     Route: 065
  43. DILTIAZEM HYDROCHLORIDE [Suspect]
     Active Substance: DILTIAZEM HYDROCHLORIDE
     Indication: Hypertension
     Dosage: 360 MG, QD (EVERY 24 HOURS)
     Route: 065
  44. DILTIAZEM HYDROCHLORIDE [Suspect]
     Active Substance: DILTIAZEM HYDROCHLORIDE
     Indication: Coronary artery disease
     Dosage: 500 MG, QD
     Route: 065
  45. DILTIAZEM HYDROCHLORIDE [Suspect]
     Active Substance: DILTIAZEM HYDROCHLORIDE
     Indication: Chest pain
     Dosage: 360 MG, QD (EVERY 24 HOURS)
     Route: 065
  46. DILTIAZEM HYDROCHLORIDE [Suspect]
     Active Substance: DILTIAZEM HYDROCHLORIDE
     Indication: Angina pectoris
     Dosage: 360 MG, QD (EVERY 24 HOURS)
     Route: 065
  47. DILTIAZEM HYDROCHLORIDE [Suspect]
     Active Substance: DILTIAZEM HYDROCHLORIDE
     Dosage: 360 MG, QD (EVERY 24 HOURS)
     Route: 065
  48. DILTIAZEM HYDROCHLORIDE [Suspect]
     Active Substance: DILTIAZEM HYDROCHLORIDE
     Dosage: 360 MG
     Route: 065
  49. DILTIAZEM HYDROCHLORIDE [Suspect]
     Active Substance: DILTIAZEM HYDROCHLORIDE
     Dosage: UNK(CAPSULE SUSTAINED RELEASE)
     Route: 065
  50. DILTIAZEM HYDROCHLORIDE [Suspect]
     Active Substance: DILTIAZEM HYDROCHLORIDE
     Dosage: 360 MG
     Route: 042
  51. DILTIAZEM HYDROCHLORIDE [Suspect]
     Active Substance: DILTIAZEM HYDROCHLORIDE
     Dosage: 15 MG, QD (EVERY 24 HOURS))
     Route: 065
  52. DILTIAZEM HYDROCHLORIDE [Suspect]
     Active Substance: DILTIAZEM HYDROCHLORIDE
     Dosage: UNK (MODIFIED-RELEASE CAPSULE, HARD
     Route: 065
  53. DILTIAZEM HYDROCHLORIDE [Suspect]
     Active Substance: DILTIAZEM HYDROCHLORIDE
     Dosage: UNK (MODIFIED-RELEASE CAPSULE, HARD
     Route: 065
  54. DILTIAZEM HYDROCHLORIDE [Suspect]
     Active Substance: DILTIAZEM HYDROCHLORIDE
     Dosage: UNK
     Route: 065
  55. GALANTAMINE HYDROBROMIDE [Suspect]
     Active Substance: GALANTAMINE HYDROBROMIDE
     Indication: Pain
     Dosage: 16 MG, QD, (MODIFIED-RELEASE CAPSULE, HARD)
     Route: 065
  56. GALANTAMINE HYDROBROMIDE [Suspect]
     Active Substance: GALANTAMINE HYDROBROMIDE
     Indication: Dementia
     Dosage: UNK, (MODIFIED-RELEASE CAPSULE, HARD)
     Route: 065
  57. GALANTAMINE HYDROBROMIDE [Suspect]
     Active Substance: GALANTAMINE HYDROBROMIDE
     Dosage: 16 MG, QD
     Route: 065
  58. GALANTAMINE HYDROBROMIDE [Suspect]
     Active Substance: GALANTAMINE HYDROBROMIDE
     Dosage: UNK (PROLONGED-RELEASE CAPSULE)
     Route: 065
  59. LEVOFLOXACIN [Suspect]
     Active Substance: LEVOFLOXACIN
     Indication: Urinary tract infection
     Dosage: 250 MG, QD
     Route: 065
  60. LEVOFLOXACIN [Suspect]
     Active Substance: LEVOFLOXACIN
     Dosage: 250 MG, QD
     Route: 065
  61. LEVOFLOXACIN [Suspect]
     Active Substance: LEVOFLOXACIN
     Dosage: UNK
     Route: 065
  62. LEVOFLOXACIN [Suspect]
     Active Substance: LEVOFLOXACIN
     Dosage: UNK
     Route: 065
  63. LEVOFLOXACIN [Suspect]
     Active Substance: LEVOFLOXACIN
     Dosage: UNK
     Route: 065
  64. LEVOFLOXACIN [Suspect]
     Active Substance: LEVOFLOXACIN
     Dosage: UNK
     Route: 065
  65. MORPHINE SULFATE [Suspect]
     Active Substance: MORPHINE SULFATE
     Indication: Pain
     Dosage: 20 MG, QD
     Route: 030
  66. MORPHINE SULFATE [Suspect]
     Active Substance: MORPHINE SULFATE
     Indication: Fibromyalgia
     Dosage: 20 MG, QD
     Route: 030
  67. MORPHINE SULFATE [Suspect]
     Active Substance: MORPHINE SULFATE
     Dosage: 20 MG, QD
     Route: 030
  68. MORPHINE SULFATE [Suspect]
     Active Substance: MORPHINE SULFATE
     Dosage: 10 MG, QD
     Route: 030
  69. MORPHINE SULFATE [Suspect]
     Active Substance: MORPHINE SULFATE
     Dosage: 10 MG, QD
     Route: 030
  70. MORPHINE SULFATE [Suspect]
     Active Substance: MORPHINE SULFATE
     Dosage: 10 MG, QD
     Route: 030
  71. MORPHINE SULFATE [Suspect]
     Active Substance: MORPHINE SULFATE
     Dosage: UNK
     Route: 065
  72. ROSUVASTATIN CALCIUM [Suspect]
     Active Substance: ROSUVASTATIN CALCIUM
     Indication: Cerebrovascular accident
     Dosage: 20 MG, BID
     Route: 048
  73. ROSUVASTATIN CALCIUM [Suspect]
     Active Substance: ROSUVASTATIN CALCIUM
     Indication: Hypertension
     Dosage: 40 MG, QD
     Route: 048
  74. ROSUVASTATIN CALCIUM [Suspect]
     Active Substance: ROSUVASTATIN CALCIUM
     Indication: Coronary artery disease
     Dosage: 200 MG, Q12H
     Route: 065
  75. ROSUVASTATIN CALCIUM [Suspect]
     Active Substance: ROSUVASTATIN CALCIUM
     Indication: Chronic obstructive pulmonary disease
     Dosage: 20 MG (1 EVERY 12 HOURS)
     Route: 048
  76. ROSUVASTATIN CALCIUM [Suspect]
     Active Substance: ROSUVASTATIN CALCIUM
     Indication: Chest pain
     Dosage: UNK
     Route: 058
  77. ROSUVASTATIN CALCIUM [Suspect]
     Active Substance: ROSUVASTATIN CALCIUM
     Indication: Angina pectoris
     Dosage: 20 MG, Q12H
     Route: 048
  78. ROSUVASTATIN CALCIUM [Suspect]
     Active Substance: ROSUVASTATIN CALCIUM
     Dosage: 10 MG, QD
     Route: 048
  79. ROSUVASTATIN CALCIUM [Suspect]
     Active Substance: ROSUVASTATIN CALCIUM
     Dosage: 20 MG, QD
     Route: 048
  80. ROSUVASTATIN CALCIUM [Suspect]
     Active Substance: ROSUVASTATIN CALCIUM
     Dosage: 200 MG, Q6H
     Route: 065
  81. ROSUVASTATIN CALCIUM [Suspect]
     Active Substance: ROSUVASTATIN CALCIUM
     Dosage: 10 MG (1 EVERY 12 HOURS)
     Route: 048
  82. ROSUVASTATIN CALCIUM [Suspect]
     Active Substance: ROSUVASTATIN CALCIUM
     Dosage: 20 MG
     Route: 065
  83. ROSUVASTATIN CALCIUM [Suspect]
     Active Substance: ROSUVASTATIN CALCIUM
     Dosage: UNK
     Route: 048
  84. ROSUVASTATIN CALCIUM [Suspect]
     Active Substance: ROSUVASTATIN CALCIUM
     Dosage: 40 MG, QD
     Route: 048
  85. ROSUVASTATIN CALCIUM [Suspect]
     Active Substance: ROSUVASTATIN CALCIUM
     Dosage: 40 MG, QD
     Route: 048
  86. ROSUVASTATIN CALCIUM [Suspect]
     Active Substance: ROSUVASTATIN CALCIUM
     Dosage: 40 MG, QD
     Route: 048
  87. ROSUVASTATIN CALCIUM [Suspect]
     Active Substance: ROSUVASTATIN CALCIUM
     Dosage: 40 MG, QD
     Route: 048
  88. ROSUVASTATIN CALCIUM [Suspect]
     Active Substance: ROSUVASTATIN CALCIUM
     Dosage: 40 MG, QD
     Route: 048
  89. ROSUVASTATIN CALCIUM [Suspect]
     Active Substance: ROSUVASTATIN CALCIUM
     Dosage: 20 MG, Q12H
     Route: 048
  90. ROSUVASTATIN CALCIUM [Suspect]
     Active Substance: ROSUVASTATIN CALCIUM
     Dosage: 20 MG, Q12H
     Route: 048
  91. ROSUVASTATIN CALCIUM [Suspect]
     Active Substance: ROSUVASTATIN CALCIUM
     Dosage: 20 MG, Q12H
     Route: 048
  92. ROSUVASTATIN CALCIUM [Suspect]
     Active Substance: ROSUVASTATIN CALCIUM
     Dosage: 20 MG, Q12H
     Route: 048
  93. ROSUVASTATIN CALCIUM [Suspect]
     Active Substance: ROSUVASTATIN CALCIUM
     Dosage: 20 MG, Q12H
     Route: 048
  94. ROSUVASTATIN CALCIUM [Suspect]
     Active Substance: ROSUVASTATIN CALCIUM
     Dosage: 20 MG, Q12H
     Route: 048
  95. ROSUVASTATIN CALCIUM [Suspect]
     Active Substance: ROSUVASTATIN CALCIUM
     Dosage: 20 MG, Q12H
     Route: 048
  96. ROSUVASTATIN CALCIUM [Suspect]
     Active Substance: ROSUVASTATIN CALCIUM
     Dosage: 20 MG, Q12H
     Route: 048
  97. ROSUVASTATIN CALCIUM [Suspect]
     Active Substance: ROSUVASTATIN CALCIUM
     Dosage: 20 MG, Q12H
     Route: 048
  98. ROSUVASTATIN CALCIUM [Suspect]
     Active Substance: ROSUVASTATIN CALCIUM
     Dosage: 20 MG, Q12H
     Route: 048
  99. ROSUVASTATIN CALCIUM [Suspect]
     Active Substance: ROSUVASTATIN CALCIUM
     Dosage: 20 MG, Q12H
     Route: 048
  100. ROSUVASTATIN CALCIUM [Suspect]
     Active Substance: ROSUVASTATIN CALCIUM
     Dosage: 20 MG, Q12H
     Route: 048
  101. ROSUVASTATIN CALCIUM [Suspect]
     Active Substance: ROSUVASTATIN CALCIUM
     Dosage: 20 MG, QD
     Route: 048
  102. ROSUVASTATIN CALCIUM [Suspect]
     Active Substance: ROSUVASTATIN CALCIUM
     Dosage: 20 MG, QD
     Route: 048
  103. ROSUVASTATIN CALCIUM [Suspect]
     Active Substance: ROSUVASTATIN CALCIUM
     Dosage: 20 MG, QD
     Route: 048
  104. ROSUVASTATIN CALCIUM [Suspect]
     Active Substance: ROSUVASTATIN CALCIUM
     Dosage: 20 MG, QD
     Route: 048
  105. ROSUVASTATIN CALCIUM [Suspect]
     Active Substance: ROSUVASTATIN CALCIUM
     Dosage: 20 MG, QD
     Route: 048
  106. ROSUVASTATIN CALCIUM [Suspect]
     Active Substance: ROSUVASTATIN CALCIUM
     Dosage: 200 MG, Q12H
     Route: 065
  107. ROSUVASTATIN CALCIUM [Suspect]
     Active Substance: ROSUVASTATIN CALCIUM
     Dosage: 200 MG, Q12H
     Route: 065
  108. ROSUVASTATIN CALCIUM [Suspect]
     Active Substance: ROSUVASTATIN CALCIUM
     Dosage: 200 MG, Q12H
     Route: 065
  109. ROSUVASTATIN CALCIUM [Suspect]
     Active Substance: ROSUVASTATIN CALCIUM
     Dosage: 200 MG, Q12H
     Route: 065
  110. ROSUVASTATIN CALCIUM [Suspect]
     Active Substance: ROSUVASTATIN CALCIUM
     Dosage: 200 MG, Q12H
     Route: 065
  111. ROSUVASTATIN CALCIUM [Suspect]
     Active Substance: ROSUVASTATIN CALCIUM
     Dosage: 200 MG, Q6H
     Route: 065
  112. ROSUVASTATIN CALCIUM [Suspect]
     Active Substance: ROSUVASTATIN CALCIUM
     Dosage: 200 MG, Q6H
     Route: 065
  113. ROSUVASTATIN CALCIUM [Suspect]
     Active Substance: ROSUVASTATIN CALCIUM
     Dosage: 200 MG, Q6H
     Route: 065
  114. ROSUVASTATIN CALCIUM [Suspect]
     Active Substance: ROSUVASTATIN CALCIUM
     Dosage: 200 MG, Q6H
     Route: 065
  115. ROSUVASTATIN CALCIUM [Suspect]
     Active Substance: ROSUVASTATIN CALCIUM
     Dosage: 200 MG, Q6H
     Route: 065
  116. ROSUVASTATIN CALCIUM [Suspect]
     Active Substance: ROSUVASTATIN CALCIUM
     Dosage: 200 MG, Q6H
     Route: 065
  117. ROSUVASTATIN CALCIUM [Suspect]
     Active Substance: ROSUVASTATIN CALCIUM
     Dosage: 200 MG, Q6H
     Route: 065
  118. AMLODIPINE BESYLATE [Suspect]
     Active Substance: AMLODIPINE BESYLATE
     Indication: Hypertension
     Dosage: UNK
     Route: 065
  119. AMLODIPINE BESYLATE [Suspect]
     Active Substance: AMLODIPINE BESYLATE
     Indication: Coronary artery disease
     Dosage: 5 MG
     Route: 065
  120. AMLODIPINE BESYLATE [Suspect]
     Active Substance: AMLODIPINE BESYLATE
     Indication: Angina pectoris
     Dosage: 5 MG, QD
     Route: 065
  121. AMLODIPINE BESYLATE [Suspect]
     Active Substance: AMLODIPINE BESYLATE
     Indication: Constipation
     Dosage: UNK
     Route: 065
  122. AMLODIPINE BESYLATE [Suspect]
     Active Substance: AMLODIPINE BESYLATE
     Dosage: UNK
     Route: 065
  123. AMLODIPINE BESYLATE [Suspect]
     Active Substance: AMLODIPINE BESYLATE
     Dosage: UNK
     Route: 065
  124. ACEBUTOLOL HYDROCHLORIDE [Suspect]
     Active Substance: ACEBUTOLOL HYDROCHLORIDE
     Indication: Chronic obstructive pulmonary disease
     Dosage: 200 MG, QD
     Route: 065
  125. ACEBUTOLOL HYDROCHLORIDE [Suspect]
     Active Substance: ACEBUTOLOL HYDROCHLORIDE
     Indication: Asthma
     Dosage: 400 MG, QD
     Route: 065
  126. ACEBUTOLOL HYDROCHLORIDE [Suspect]
     Active Substance: ACEBUTOLOL HYDROCHLORIDE
     Indication: Chest pain
     Dosage: 100 MG, QD
     Route: 065
  127. ACEBUTOLOL HYDROCHLORIDE [Suspect]
     Active Substance: ACEBUTOLOL HYDROCHLORIDE
     Indication: Angina pectoris
     Dosage: 400 MG, QD
     Route: 065
  128. ACEBUTOLOL HYDROCHLORIDE [Suspect]
     Active Substance: ACEBUTOLOL HYDROCHLORIDE
     Indication: Hypertension
     Dosage: 400 MG, QD
     Route: 065
  129. ACEBUTOLOL HYDROCHLORIDE [Suspect]
     Active Substance: ACEBUTOLOL HYDROCHLORIDE
     Indication: Coronary artery disease
     Dosage: 400 MG, QD
     Route: 065
  130. ACEBUTOLOL HYDROCHLORIDE [Suspect]
     Active Substance: ACEBUTOLOL HYDROCHLORIDE
     Dosage: 200 MG, QD
     Route: 065
  131. ACEBUTOLOL HYDROCHLORIDE [Suspect]
     Active Substance: ACEBUTOLOL HYDROCHLORIDE
     Dosage: 200 MG, QD
     Route: 065
  132. ACEBUTOLOL HYDROCHLORIDE [Suspect]
     Active Substance: ACEBUTOLOL HYDROCHLORIDE
     Dosage: 200 MG, QD
     Route: 065
  133. ACEBUTOLOL HYDROCHLORIDE [Suspect]
     Active Substance: ACEBUTOLOL HYDROCHLORIDE
     Dosage: 100 MG, QD
     Route: 065
  134. ACEBUTOLOL HYDROCHLORIDE [Suspect]
     Active Substance: ACEBUTOLOL HYDROCHLORIDE
     Dosage: 100 MG, QD
     Route: 065
  135. ACEBUTOLOL HYDROCHLORIDE [Suspect]
     Active Substance: ACEBUTOLOL HYDROCHLORIDE
     Dosage: 100 MG, QD
     Route: 065
  136. ACEBUTOLOL HYDROCHLORIDE [Suspect]
     Active Substance: ACEBUTOLOL HYDROCHLORIDE
     Dosage: 400 MG, QD
     Route: 065
  137. ACEBUTOLOL HYDROCHLORIDE [Suspect]
     Active Substance: ACEBUTOLOL HYDROCHLORIDE
     Dosage: UNK
     Route: 065
  138. ACEBUTOLOL HYDROCHLORIDE [Suspect]
     Active Substance: ACEBUTOLOL HYDROCHLORIDE
     Dosage: 100 MG (1 EVERY 12 HOURS)
     Route: 065
  139. ACEBUTOLOL HYDROCHLORIDE [Suspect]
     Active Substance: ACEBUTOLOL HYDROCHLORIDE
     Dosage: 100 MG (1 EVERY 12 HOURS)
     Route: 065
  140. ACEBUTOLOL HYDROCHLORIDE [Suspect]
     Active Substance: ACEBUTOLOL HYDROCHLORIDE
     Dosage: 100 MG (1 EVERY 12 HOURS)
     Route: 065
  141. ACEBUTOLOL HYDROCHLORIDE [Suspect]
     Active Substance: ACEBUTOLOL HYDROCHLORIDE
     Dosage: 200 MG (1 EVERY 12 HOURS)
     Route: 065
  142. ACEBUTOLOL HYDROCHLORIDE [Suspect]
     Active Substance: ACEBUTOLOL HYDROCHLORIDE
     Dosage: 200 MG (1 EVERY 12 HOURS)
     Route: 065
  143. ACEBUTOLOL HYDROCHLORIDE [Suspect]
     Active Substance: ACEBUTOLOL HYDROCHLORIDE
     Dosage: 200 MG (1 EVERY 12 HOURS)
     Route: 065
  144. ACEBUTOLOL HYDROCHLORIDE [Suspect]
     Active Substance: ACEBUTOLOL HYDROCHLORIDE
     Dosage: 50 MG (1 EVERY 12 HOURS)
     Route: 065
  145. ACEBUTOLOL HYDROCHLORIDE [Suspect]
     Active Substance: ACEBUTOLOL HYDROCHLORIDE
     Dosage: 200 MG (1 EVERY 4.8 HOURS)
     Route: 065
  146. ACEBUTOLOL HYDROCHLORIDE [Suspect]
     Active Substance: ACEBUTOLOL HYDROCHLORIDE
     Dosage: 50 MG (1 EVERY 12 HOURS)
     Route: 065
  147. ACEBUTOLOL HYDROCHLORIDE [Suspect]
     Active Substance: ACEBUTOLOL HYDROCHLORIDE
     Dosage: 100 MG
     Route: 065
  148. ACEBUTOLOL HYDROCHLORIDE [Suspect]
     Active Substance: ACEBUTOLOL HYDROCHLORIDE
     Dosage: 100 MG (1 EVERY 12 HOURS)
     Route: 065
  149. ACEBUTOLOL HYDROCHLORIDE [Suspect]
     Active Substance: ACEBUTOLOL HYDROCHLORIDE
     Dosage: 100 MG (1 EVERY 12 HOURS)
     Route: 065
  150. ACEBUTOLOL HYDROCHLORIDE [Suspect]
     Active Substance: ACEBUTOLOL HYDROCHLORIDE
     Dosage: 100 MG (1 EVERY 12 HOURS)
     Route: 065
  151. ACEBUTOLOL HYDROCHLORIDE [Suspect]
     Active Substance: ACEBUTOLOL HYDROCHLORIDE
     Dosage: 100 MG (1 EVERY 12 HOURS)
     Route: 065
  152. ACEBUTOLOL HYDROCHLORIDE [Suspect]
     Active Substance: ACEBUTOLOL HYDROCHLORIDE
     Dosage: 100 MG (1 EVERY 12 HOURS)
     Route: 065
  153. ACEBUTOLOL HYDROCHLORIDE [Suspect]
     Active Substance: ACEBUTOLOL HYDROCHLORIDE
     Dosage: 100 MG (1 EVERY 12 HOURS)
     Route: 065
  154. ACEBUTOLOL HYDROCHLORIDE [Suspect]
     Active Substance: ACEBUTOLOL HYDROCHLORIDE
     Dosage: 100 MG (1 EVERY 12 HOURS)
     Route: 065
  155. ACEBUTOLOL HYDROCHLORIDE [Suspect]
     Active Substance: ACEBUTOLOL HYDROCHLORIDE
     Dosage: 100 MG (1 EVERY 12 HOURS)
     Route: 065
  156. ACEBUTOLOL HYDROCHLORIDE [Suspect]
     Active Substance: ACEBUTOLOL HYDROCHLORIDE
     Dosage: 100 MG (1 EVERY 12 HOURS)
     Route: 065
  157. ACEBUTOLOL HYDROCHLORIDE [Suspect]
     Active Substance: ACEBUTOLOL HYDROCHLORIDE
     Dosage: 100 MG (1 EVERY 12 HOURS)
     Route: 065
  158. ACEBUTOLOL HYDROCHLORIDE [Suspect]
     Active Substance: ACEBUTOLOL HYDROCHLORIDE
     Dosage: 100 MG (1 EVERY 12 HOURS)
     Route: 065
  159. ACEBUTOLOL HYDROCHLORIDE [Suspect]
     Active Substance: ACEBUTOLOL HYDROCHLORIDE
     Dosage: 100 MG (1 EVERY 12 HOURS)
     Route: 065
  160. ACEBUTOLOL HYDROCHLORIDE [Suspect]
     Active Substance: ACEBUTOLOL HYDROCHLORIDE
     Dosage: 100 MG (1 EVERY 12 HOURS)
     Route: 065
  161. ACEBUTOLOL HYDROCHLORIDE [Suspect]
     Active Substance: ACEBUTOLOL HYDROCHLORIDE
     Dosage: 100 MG (1 EVERY 12 HOURS)
     Route: 065
  162. ACEBUTOLOL HYDROCHLORIDE [Suspect]
     Active Substance: ACEBUTOLOL HYDROCHLORIDE
     Dosage: 200 MG (1 EVERY 12 HOURS)
     Route: 065
  163. ACEBUTOLOL HYDROCHLORIDE [Suspect]
     Active Substance: ACEBUTOLOL HYDROCHLORIDE
     Dosage: 200 MG (1 EVERY 12 HOURS)
     Route: 065
  164. ACEBUTOLOL HYDROCHLORIDE [Suspect]
     Active Substance: ACEBUTOLOL HYDROCHLORIDE
     Dosage: 200 MG (1 EVERY 12 HOURS)
     Route: 065
  165. ACEBUTOLOL HYDROCHLORIDE [Suspect]
     Active Substance: ACEBUTOLOL HYDROCHLORIDE
     Dosage: 200 MG (1 EVERY 12 HOURS)
     Route: 065
  166. ACEBUTOLOL HYDROCHLORIDE [Suspect]
     Active Substance: ACEBUTOLOL HYDROCHLORIDE
     Dosage: 200 MG (1 EVERY 12 HOURS)
     Route: 065
  167. ACEBUTOLOL HYDROCHLORIDE [Suspect]
     Active Substance: ACEBUTOLOL HYDROCHLORIDE
     Dosage: 200 MG (1 EVERY 12 HOURS)
     Route: 065
  168. ACEBUTOLOL HYDROCHLORIDE [Suspect]
     Active Substance: ACEBUTOLOL HYDROCHLORIDE
     Dosage: 200 MG (1 EVERY 12 HOURS)
     Route: 065
  169. ACEBUTOLOL HYDROCHLORIDE [Suspect]
     Active Substance: ACEBUTOLOL HYDROCHLORIDE
     Dosage: 200 MG (1 EVERY 12 HOURS)
     Route: 065
  170. ACEBUTOLOL HYDROCHLORIDE [Suspect]
     Active Substance: ACEBUTOLOL HYDROCHLORIDE
     Dosage: 200 MG (1 EVERY 12 HOURS)
     Route: 065
  171. ACEBUTOLOL HYDROCHLORIDE [Suspect]
     Active Substance: ACEBUTOLOL HYDROCHLORIDE
     Dosage: 200 MG (1 EVERY 12 HOURS)
     Route: 065
  172. ACEBUTOLOL HYDROCHLORIDE [Suspect]
     Active Substance: ACEBUTOLOL HYDROCHLORIDE
     Dosage: 200 MG (1 EVERY 12 HOURS)
     Route: 065
  173. ACEBUTOLOL HYDROCHLORIDE [Suspect]
     Active Substance: ACEBUTOLOL HYDROCHLORIDE
     Dosage: 50 MG (1 EVERY 12 HOURS)
     Route: 065
  174. ASPIRIN [Suspect]
     Active Substance: ASPIRIN
     Indication: Cerebrovascular accident
     Dosage: UNK
     Route: 065
  175. ASPIRIN [Suspect]
     Active Substance: ASPIRIN
     Indication: Hypertension
     Dosage: UNK
     Route: 065
  176. ASPIRIN [Suspect]
     Active Substance: ASPIRIN
     Indication: Coronary artery disease
     Dosage: UNK
     Route: 065
  177. ASPIRIN [Suspect]
     Active Substance: ASPIRIN
     Indication: Angina pectoris
     Dosage: 1 DOSAGE FORM (1 EVERY 12 HOURS)
     Route: 065
  178. ASPIRIN [Suspect]
     Active Substance: ASPIRIN
     Dosage: 1 DOSAGE FORM (1 EVERY 12 HOURS)
     Route: 065
  179. AGGRENOX [Suspect]
     Active Substance: ASPIRIN\DIPYRIDAMOLE
     Indication: Cerebrovascular accident
     Dosage: 1 DOSAGE FORM, BID, IMMEDIATE AND EXTENDED RELEASE
     Route: 065
  180. AGGRENOX [Suspect]
     Active Substance: ASPIRIN\DIPYRIDAMOLE
     Dosage: 2 DOSAGE FORM, QD
     Route: 065
  181. AGGRENOX [Suspect]
     Active Substance: ASPIRIN\DIPYRIDAMOLE
     Dosage: 2 DOSAGE FORM
     Route: 065
  182. AGGRENOX [Suspect]
     Active Substance: ASPIRIN\DIPYRIDAMOLE
     Dosage: 50.0 DOSAGE FORM, QD
     Route: 065
  183. AGGRENOX [Suspect]
     Active Substance: ASPIRIN\DIPYRIDAMOLE
     Dosage: 1 DOSAGE FORM (EVERY 12 HOURS)
     Route: 065
  184. AGGRENOX [Suspect]
     Active Substance: ASPIRIN\DIPYRIDAMOLE
     Dosage: 1 DOSAGE FORM, QD, IMMEDIATE AND EXTENDED RELEASE
     Route: 065
  185. AGGRENOX [Suspect]
     Active Substance: ASPIRIN\DIPYRIDAMOLE
     Dosage: UNK
     Route: 065
  186. AGGRENOX [Suspect]
     Active Substance: ASPIRIN\DIPYRIDAMOLE
     Dosage: 2 DOSAGE FORM, (1 EVERY 1 DAYS)
     Route: 065
  187. CAFFEINE [Interacting]
     Active Substance: CAFFEINE
     Indication: Product used for unknown indication
     Dosage: UNK
     Route: 065
  188. AMITRIPTYLINE HYDROCHLORIDE [Interacting]
     Active Substance: AMITRIPTYLINE HYDROCHLORIDE
     Indication: Insomnia
     Dosage: 75 MG, QD
     Route: 065
  189. AMITRIPTYLINE HYDROCHLORIDE [Interacting]
     Active Substance: AMITRIPTYLINE HYDROCHLORIDE
     Indication: Thyroid disorder
     Dosage: 50 MG, QD
     Route: 065
  190. AMITRIPTYLINE HYDROCHLORIDE [Interacting]
     Active Substance: AMITRIPTYLINE HYDROCHLORIDE
     Indication: Radioactive iodine therapy
     Dosage: 75 MG, QD
     Route: 065
  191. AMITRIPTYLINE HYDROCHLORIDE [Interacting]
     Active Substance: AMITRIPTYLINE HYDROCHLORIDE
     Indication: Prophylaxis
     Dosage: 75 MG, QD
     Route: 065
  192. AMITRIPTYLINE HYDROCHLORIDE [Interacting]
     Active Substance: AMITRIPTYLINE HYDROCHLORIDE
     Indication: Pain
     Dosage: 75 MG, QD
     Route: 065
  193. AMITRIPTYLINE HYDROCHLORIDE [Interacting]
     Active Substance: AMITRIPTYLINE HYDROCHLORIDE
     Indication: Oedema
     Dosage: 50 MG, QD
     Route: 065
  194. AMITRIPTYLINE HYDROCHLORIDE [Interacting]
     Active Substance: AMITRIPTYLINE HYDROCHLORIDE
     Indication: Hypertension
     Dosage: 50 MG
     Route: 065
  195. AMITRIPTYLINE HYDROCHLORIDE [Interacting]
     Active Substance: AMITRIPTYLINE HYDROCHLORIDE
     Indication: Fibromyalgia
     Dosage: 75 MG
     Route: 065
  196. AMITRIPTYLINE HYDROCHLORIDE [Interacting]
     Active Substance: AMITRIPTYLINE HYDROCHLORIDE
     Indication: Duodenal ulcer
     Dosage: UNK
     Route: 065
  197. AMITRIPTYLINE HYDROCHLORIDE [Interacting]
     Active Substance: AMITRIPTYLINE HYDROCHLORIDE
     Indication: Dementia
     Dosage: 25 MG, 1 EVERY 1 DAY
     Route: 065
  198. AMITRIPTYLINE HYDROCHLORIDE [Interacting]
     Active Substance: AMITRIPTYLINE HYDROCHLORIDE
     Indication: Coronary artery disease
     Dosage: 50 MG, 1 EVERY 1 DAY
     Route: 065
  199. AMITRIPTYLINE HYDROCHLORIDE [Interacting]
     Active Substance: AMITRIPTYLINE HYDROCHLORIDE
     Indication: Constipation
     Dosage: 50 MG, 1 EVERY 1 DAY
     Route: 065
  200. AMITRIPTYLINE HYDROCHLORIDE [Interacting]
     Active Substance: AMITRIPTYLINE HYDROCHLORIDE
     Indication: Chest pain
     Dosage: 50 MG, 1 EVERY 1 DAY
     Route: 065
  201. AMITRIPTYLINE HYDROCHLORIDE [Interacting]
     Active Substance: AMITRIPTYLINE HYDROCHLORIDE
     Indication: Arthritis
     Dosage: 50 MG, 1 EVERY 1 DAY
     Route: 065
  202. AMITRIPTYLINE HYDROCHLORIDE [Interacting]
     Active Substance: AMITRIPTYLINE HYDROCHLORIDE
     Indication: Angina pectoris
     Dosage: 50 MG, 1 EVERY 1 DAY
     Route: 065
  203. AMITRIPTYLINE HYDROCHLORIDE [Interacting]
     Active Substance: AMITRIPTYLINE HYDROCHLORIDE
     Dosage: 50 MG, 1 EVERY 1 DAY
     Route: 065
  204. AMITRIPTYLINE HYDROCHLORIDE [Interacting]
     Active Substance: AMITRIPTYLINE HYDROCHLORIDE
     Dosage: 50 MG, 1 EVERY 1 DAY
     Route: 065
  205. AMITRIPTYLINE HYDROCHLORIDE [Interacting]
     Active Substance: AMITRIPTYLINE HYDROCHLORIDE
     Dosage: 50 MG, 1 EVERY 1 DAY
     Route: 065
  206. AMITRIPTYLINE HYDROCHLORIDE [Interacting]
     Active Substance: AMITRIPTYLINE HYDROCHLORIDE
     Dosage: 50 MG, 1 EVERY 1 DAY
     Route: 065
  207. AMITRIPTYLINE HYDROCHLORIDE [Interacting]
     Active Substance: AMITRIPTYLINE HYDROCHLORIDE
     Dosage: 50 MG, 1 EVERY 1 DAY
     Route: 065
  208. AMITRIPTYLINE HYDROCHLORIDE [Interacting]
     Active Substance: AMITRIPTYLINE HYDROCHLORIDE
     Dosage: 50 MG, 1 EVERY 1 DAY
     Route: 065
  209. AMITRIPTYLINE HYDROCHLORIDE [Interacting]
     Active Substance: AMITRIPTYLINE HYDROCHLORIDE
     Dosage: 50 MG, 1 EVERY 1 DAY
     Route: 065
  210. AMITRIPTYLINE HYDROCHLORIDE [Interacting]
     Active Substance: AMITRIPTYLINE HYDROCHLORIDE
     Dosage: 50 MG, 1 EVERY 1 DAY
     Route: 065
  211. AMITRIPTYLINE HYDROCHLORIDE [Interacting]
     Active Substance: AMITRIPTYLINE HYDROCHLORIDE
     Dosage: 50 MG, 1 EVERY 1 DAY
     Route: 065
  212. AMITRIPTYLINE HYDROCHLORIDE [Interacting]
     Active Substance: AMITRIPTYLINE HYDROCHLORIDE
     Dosage: 50 MG, 1 EVERY 1 DAY
     Route: 065
  213. AMITRIPTYLINE HYDROCHLORIDE [Interacting]
     Active Substance: AMITRIPTYLINE HYDROCHLORIDE
     Dosage: 50 MG, 1 EVERY 1 DAY
     Route: 065
  214. AMITRIPTYLINE HYDROCHLORIDE [Interacting]
     Active Substance: AMITRIPTYLINE HYDROCHLORIDE
     Dosage: 75 MG, 1 EVERY 1 DAY
     Route: 065
  215. AMITRIPTYLINE HYDROCHLORIDE [Interacting]
     Active Substance: AMITRIPTYLINE HYDROCHLORIDE
     Dosage: 75 MG, 1 EVERY 1 DAY
     Route: 065
  216. AMITRIPTYLINE HYDROCHLORIDE [Interacting]
     Active Substance: AMITRIPTYLINE HYDROCHLORIDE
     Dosage: 75 MG, 1 EVERY 1 DAY
     Route: 065
  217. AMITRIPTYLINE HYDROCHLORIDE [Interacting]
     Active Substance: AMITRIPTYLINE HYDROCHLORIDE
     Dosage: 75 MG, 1 EVERY 1 DAY
     Route: 065
  218. AMITRIPTYLINE HYDROCHLORIDE [Interacting]
     Active Substance: AMITRIPTYLINE HYDROCHLORIDE
     Dosage: 75 MG, 1 EVERY 1 DAY
     Route: 065
  219. AMITRIPTYLINE HYDROCHLORIDE [Interacting]
     Active Substance: AMITRIPTYLINE HYDROCHLORIDE
     Dosage: 75 MG, 1 EVERY 1 DAY
     Route: 065
  220. AMITRIPTYLINE HYDROCHLORIDE [Interacting]
     Active Substance: AMITRIPTYLINE HYDROCHLORIDE
     Dosage: 75 MG, 1 EVERY 1 DAY
     Route: 065
  221. AMITRIPTYLINE HYDROCHLORIDE [Interacting]
     Active Substance: AMITRIPTYLINE HYDROCHLORIDE
     Dosage: 75 MG, 1 EVERY 1 DAY
     Route: 065
  222. AMITRIPTYLINE HYDROCHLORIDE [Interacting]
     Active Substance: AMITRIPTYLINE HYDROCHLORIDE
     Dosage: 75 MG, 1 EVERY 1 DAY
     Route: 065
  223. AMITRIPTYLINE HYDROCHLORIDE [Interacting]
     Active Substance: AMITRIPTYLINE HYDROCHLORIDE
     Dosage: 75 MG, 1 EVERY 1 DAY
     Route: 065
  224. AMITRIPTYLINE HYDROCHLORIDE [Interacting]
     Active Substance: AMITRIPTYLINE HYDROCHLORIDE
     Dosage: 75 MG, 1 EVERY 1 DAY
     Route: 065
  225. AMITRIPTYLINE HYDROCHLORIDE [Interacting]
     Active Substance: AMITRIPTYLINE HYDROCHLORIDE
     Dosage: 75 MG, 1 EVERY 1 DAY
     Route: 065
  226. AMITRIPTYLINE HYDROCHLORIDE [Interacting]
     Active Substance: AMITRIPTYLINE HYDROCHLORIDE
     Dosage: 75 MG, 1 EVERY 1 DAY
     Route: 065
  227. AMITRIPTYLINE HYDROCHLORIDE [Interacting]
     Active Substance: AMITRIPTYLINE HYDROCHLORIDE
     Dosage: 75 MG, 1 EVERY 1 DAY
     Route: 065
  228. AMITRIPTYLINE HYDROCHLORIDE [Interacting]
     Active Substance: AMITRIPTYLINE HYDROCHLORIDE
     Dosage: 75 MG, 1 EVERY 1 DAY
     Route: 065
  229. AMITRIPTYLINE HYDROCHLORIDE [Interacting]
     Active Substance: AMITRIPTYLINE HYDROCHLORIDE
     Dosage: 75 MG, 1 EVERY 1 DAY
     Route: 065
  230. AMITRIPTYLINE HYDROCHLORIDE [Interacting]
     Active Substance: AMITRIPTYLINE HYDROCHLORIDE
     Dosage: 75 MG, 1 EVERY 1 DAY
     Route: 065
  231. AMITRIPTYLINE HYDROCHLORIDE [Interacting]
     Active Substance: AMITRIPTYLINE HYDROCHLORIDE
     Dosage: 75 MG, 1 EVERY 1 DAY
     Route: 065
  232. AMITRIPTYLINE HYDROCHLORIDE [Interacting]
     Active Substance: AMITRIPTYLINE HYDROCHLORIDE
     Dosage: UNK
     Route: 065
  233. AMITRIPTYLINE HYDROCHLORIDE [Interacting]
     Active Substance: AMITRIPTYLINE HYDROCHLORIDE
     Dosage: UNK
     Route: 065
  234. AMITRIPTYLINE HYDROCHLORIDE [Interacting]
     Active Substance: AMITRIPTYLINE HYDROCHLORIDE
     Dosage: UNK
     Route: 065
  235. AMITRIPTYLINE HYDROCHLORIDE [Interacting]
     Active Substance: AMITRIPTYLINE HYDROCHLORIDE
     Dosage: UNK
     Route: 065
  236. AMITRIPTYLINE HYDROCHLORIDE [Interacting]
     Active Substance: AMITRIPTYLINE HYDROCHLORIDE
     Dosage: UNK
     Route: 065
  237. AMITRIPTYLINE HYDROCHLORIDE [Interacting]
     Active Substance: AMITRIPTYLINE HYDROCHLORIDE
     Dosage: UNK
     Route: 065
  238. DULCOLAX NOS [Interacting]
     Active Substance: BISACODYL OR DOCUSATE SODIUM
     Indication: Constipation
     Dosage: UNK
     Route: 065
  239. DULCOLAX NOS [Interacting]
     Active Substance: BISACODYL OR DOCUSATE SODIUM
     Dosage: 2 DOSAGE FORM, QD
     Route: 065
  240. NITROGLYCERIN [Interacting]
     Active Substance: NITROGLYCERIN
     Indication: Hypertension
     Dosage: 0.6 MG, QD (1 EVERY 24 HOURS)
     Route: 061
  241. NITROGLYCERIN [Interacting]
     Active Substance: NITROGLYCERIN
     Indication: Coronary artery disease
     Dosage: 0.4 MG, QD (1 EVERY 24 HOURS)
     Route: 065
  242. NITROGLYCERIN [Interacting]
     Active Substance: NITROGLYCERIN
     Indication: Chest pain
     Dosage: 0.6 MG, QD (1 EVERY 24 HOURS)
     Route: 061
  243. NITROGLYCERIN [Interacting]
     Active Substance: NITROGLYCERIN
     Indication: Angina pectoris
     Dosage: 0.6 MG, QD
     Route: 061
  244. NITROGLYCERIN [Interacting]
     Active Substance: NITROGLYCERIN
     Dosage: 0.6 MG, QD
     Route: 061
  245. NITROGLYCERIN [Interacting]
     Active Substance: NITROGLYCERIN
     Dosage: 0.4 MG, QD (1 EVERY 24 HOURS)
     Route: 065
  246. NITROGLYCERIN [Interacting]
     Active Substance: NITROGLYCERIN
     Dosage: 0.4 MG, QD
     Route: 065
  247. NITROGLYCERIN [Interacting]
     Active Substance: NITROGLYCERIN
     Dosage: 0.4 MG, QD
     Route: 065
  248. NITROGLYCERIN [Interacting]
     Active Substance: NITROGLYCERIN
     Dosage: 6 MG, QD
     Route: 065
  249. NITROGLYCERIN [Interacting]
     Active Substance: NITROGLYCERIN
     Dosage: UNK
     Route: 065
  250. NITROGLYCERIN [Interacting]
     Active Substance: NITROGLYCERIN
     Dosage: 1 DOSAGE FORM, QD
     Route: 065
  251. NITROGLYCERIN [Interacting]
     Active Substance: NITROGLYCERIN
     Dosage: 20 MG, QD (1 EVERY 24 HOURS)
     Route: 065
  252. NITROGLYCERIN [Interacting]
     Active Substance: NITROGLYCERIN
     Dosage: 0.4 MG
     Route: 065
  253. NITROGLYCERIN [Interacting]
     Active Substance: NITROGLYCERIN
     Dosage: 6 MG, QD
     Route: 065
  254. NITROGLYCERIN [Interacting]
     Active Substance: NITROGLYCERIN
     Dosage: 20 MG, QD
     Route: 065
  255. NITROGLYCERIN [Interacting]
     Active Substance: NITROGLYCERIN
     Dosage: 20 MG, QD
     Route: 065
  256. NITROGLYCERIN [Interacting]
     Active Substance: NITROGLYCERIN
     Dosage: 1 DOSAGE FORM, QD
     Route: 065
  257. LACTULOSE [Interacting]
     Active Substance: LACTULOSE
     Indication: Constipation
     Dosage: 15 ML, QD, LIQUID ORAL
     Route: 048
  258. LACTULOSE [Interacting]
     Active Substance: LACTULOSE
     Indication: Thyroid disorder
     Dosage: 15 ML, QD, LIQUID ORAL
     Route: 048
  259. LACTULOSE [Interacting]
     Active Substance: LACTULOSE
     Indication: Radioactive iodine therapy
     Dosage: 15 ML, QD, LIQUID ORAL
     Route: 048
  260. LACTULOSE [Interacting]
     Active Substance: LACTULOSE
     Indication: Urinary tract infection
     Dosage: 15 MG, QD
     Route: 048
  261. LACTULOSE [Interacting]
     Active Substance: LACTULOSE
     Dosage: UNK, LIQUID ORAL
     Route: 048
  262. LACTULOSE [Interacting]
     Active Substance: LACTULOSE
     Dosage: 15 MG, QD
     Route: 048
  263. LACTULOSE [Interacting]
     Active Substance: LACTULOSE
     Dosage: 15 ML, LIQUID ORAL
     Route: 065
  264. LEVOTHYROXINE SODIUM [Interacting]
     Active Substance: LEVOTHYROXINE SODIUM
     Indication: Thyroid disorder
     Dosage: 0.88 MG, QD
     Route: 048
  265. LEVOTHYROXINE SODIUM [Interacting]
     Active Substance: LEVOTHYROXINE SODIUM
     Indication: Radioactive iodine therapy
     Dosage: 0.088 MG, QD
     Route: 048
  266. LEVOTHYROXINE SODIUM [Interacting]
     Active Substance: LEVOTHYROXINE SODIUM
     Indication: Urinary tract infection
     Dosage: UNK
     Route: 065
  267. LEVOTHYROXINE SODIUM [Interacting]
     Active Substance: LEVOTHYROXINE SODIUM
     Indication: Constipation
     Dosage: 0.088 MG, QD
     Route: 048
  268. LEVOTHYROXINE SODIUM [Interacting]
     Active Substance: LEVOTHYROXINE SODIUM
     Dosage: 0.88 MG, QD
     Route: 048
  269. LEVOTHYROXINE SODIUM [Interacting]
     Active Substance: LEVOTHYROXINE SODIUM
     Dosage: UNK
     Route: 065
  270. LEVOTHYROXINE SODIUM [Interacting]
     Active Substance: LEVOTHYROXINE SODIUM
     Dosage: 622 MG, QD
     Route: 065
  271. LEVOTHYROXINE SODIUM [Interacting]
     Active Substance: LEVOTHYROXINE SODIUM
     Dosage: 622 MG, QD
     Route: 065
  272. LEVOTHYROXINE SODIUM [Interacting]
     Active Substance: LEVOTHYROXINE SODIUM
     Dosage: 622 MG, QD
     Route: 065
  273. LEVOTHYROXINE SODIUM [Interacting]
     Active Substance: LEVOTHYROXINE SODIUM
     Dosage: 622 MG, QD
     Route: 065
  274. LEVOTHYROXINE SODIUM [Interacting]
     Active Substance: LEVOTHYROXINE SODIUM
     Dosage: 250 MG, QD
     Route: 065
  275. LEVOTHYROXINE SODIUM [Interacting]
     Active Substance: LEVOTHYROXINE SODIUM
     Dosage: 250 MG, QD
     Route: 065
  276. LEVOTHYROXINE SODIUM [Interacting]
     Active Substance: LEVOTHYROXINE SODIUM
     Dosage: 250 MG, QD
     Route: 065
  277. LEVOTHYROXINE SODIUM [Interacting]
     Active Substance: LEVOTHYROXINE SODIUM
     Dosage: 250 MG, QD
     Route: 065
  278. LEVOTHYROXINE SODIUM [Interacting]
     Active Substance: LEVOTHYROXINE SODIUM
     Dosage: 250 MG, QD
     Route: 065
  279. MAGNESIUM HYDROXIDE [Interacting]
     Active Substance: MAGNESIUM HYDROXIDE
     Indication: Constipation
     Dosage: 622 MG, QD
     Route: 065
  280. MAGNESIUM HYDROXIDE [Interacting]
     Active Substance: MAGNESIUM HYDROXIDE
     Dosage: 1 DOSAGE FORM (1 EVERY 12 HOURS)
     Route: 065
  281. MAGNESIUM HYDROXIDE [Interacting]
     Active Substance: MAGNESIUM HYDROXIDE
     Dosage: 2 DOSAGE FORM, QD
     Route: 065
  282. MAGNESIUM HYDROXIDE [Interacting]
     Active Substance: MAGNESIUM HYDROXIDE
     Dosage: UNK(1 EVERY 12 HOURS)
     Route: 065
  283. MAGNESIUM HYDROXIDE [Interacting]
     Active Substance: MAGNESIUM HYDROXIDE
     Dosage: 622 MG,  (1 EVERY 12 HOURS)
     Route: 065
  284. MAGNESIUM HYDROXIDE [Interacting]
     Active Substance: MAGNESIUM HYDROXIDE
     Dosage: 2 DOSAGE FORM, QD
     Route: 065
  285. MAGNESIUM HYDROXIDE [Interacting]
     Active Substance: MAGNESIUM HYDROXIDE
     Dosage: UNK
     Route: 065
  286. MAGNESIUM HYDROXIDE [Interacting]
     Active Substance: MAGNESIUM HYDROXIDE
     Dosage: UNK
     Route: 065
  287. MAGNESIUM HYDROXIDE [Interacting]
     Active Substance: MAGNESIUM HYDROXIDE
     Dosage: UNK, Q2W
     Route: 065
  288. MAGNESIUM HYDROXIDE [Interacting]
     Active Substance: MAGNESIUM HYDROXIDE
     Dosage: UNK
     Route: 065
  289. MAGNESIUM HYDROXIDE [Interacting]
     Active Substance: MAGNESIUM HYDROXIDE
     Dosage: UNK
     Route: 065
  290. MAGNESIUM HYDROXIDE [Interacting]
     Active Substance: MAGNESIUM HYDROXIDE
     Dosage: UNK
     Route: 065
  291. MAGNESIUM HYDROXIDE [Interacting]
     Active Substance: MAGNESIUM HYDROXIDE
     Dosage: UNK
     Route: 065
  292. MAGNESIUM HYDROXIDE [Interacting]
     Active Substance: MAGNESIUM HYDROXIDE
     Dosage: 622 MG, QD
     Route: 065
  293. MAGNESIUM HYDROXIDE [Interacting]
     Active Substance: MAGNESIUM HYDROXIDE
     Dosage: 2 DOSAGE FORM, QD
     Route: 065
  294. MAGNESIUM HYDROXIDE [Interacting]
     Active Substance: MAGNESIUM HYDROXIDE
     Dosage: 2 DOSAGE FORM, QD
     Route: 065
  295. MAGNESIUM HYDROXIDE [Interacting]
     Active Substance: MAGNESIUM HYDROXIDE
     Dosage: 2 DOSAGE FORM, QD
     Route: 065
  296. MAGNESIUM HYDROXIDE [Interacting]
     Active Substance: MAGNESIUM HYDROXIDE
     Dosage: 1 DOSAGE FORM, Q12H
     Route: 065
  297. OMEPRAZOLE MAGNESIUM [Interacting]
     Active Substance: OMEPRAZOLE MAGNESIUM
     Indication: Duodenal ulcer
     Dosage: 20 MG, BID
     Route: 048
  298. OMEPRAZOLE MAGNESIUM [Interacting]
     Active Substance: OMEPRAZOLE MAGNESIUM
     Indication: Hypertension
     Dosage: 20 MG, QD
     Route: 048
  299. OMEPRAZOLE MAGNESIUM [Interacting]
     Active Substance: OMEPRAZOLE MAGNESIUM
     Indication: Coronary artery disease
     Dosage: 20 MG, QD
     Route: 048
  300. OMEPRAZOLE MAGNESIUM [Interacting]
     Active Substance: OMEPRAZOLE MAGNESIUM
     Indication: Chest pain
     Dosage: 20 MG, QD
     Route: 048
  301. OMEPRAZOLE MAGNESIUM [Interacting]
     Active Substance: OMEPRAZOLE MAGNESIUM
     Indication: Angina pectoris
     Dosage: 20 MG, QD
     Route: 048
  302. OMEPRAZOLE MAGNESIUM [Interacting]
     Active Substance: OMEPRAZOLE MAGNESIUM
     Dosage: UNK
     Route: 065
  303. OMEPRAZOLE MAGNESIUM [Interacting]
     Active Substance: OMEPRAZOLE MAGNESIUM
     Dosage: UNK
     Route: 048
  304. QUINAPRIL HYDROCHLORIDE [Interacting]
     Active Substance: QUINAPRIL HYDROCHLORIDE
     Indication: Hypertension
     Dosage: 20 MG, QID
     Route: 065
  305. QUINAPRIL HYDROCHLORIDE [Interacting]
     Active Substance: QUINAPRIL HYDROCHLORIDE
     Indication: Coronary artery disease
     Dosage: 20 MG, QD
     Route: 065
  306. QUINAPRIL HYDROCHLORIDE [Interacting]
     Active Substance: QUINAPRIL HYDROCHLORIDE
     Indication: Chest pain
     Dosage: 40 MG, QD
     Route: 065
  307. QUINAPRIL HYDROCHLORIDE [Interacting]
     Active Substance: QUINAPRIL HYDROCHLORIDE
     Indication: Angina pectoris
     Dosage: 20 MG, QID
     Route: 065
  308. QUINAPRIL HYDROCHLORIDE [Interacting]
     Active Substance: QUINAPRIL HYDROCHLORIDE
     Indication: Cerebrovascular accident
     Dosage: 20 MG, QID
     Route: 065
  309. QUINAPRIL HYDROCHLORIDE [Interacting]
     Active Substance: QUINAPRIL HYDROCHLORIDE
     Indication: Fibromyalgia
     Dosage: 40 MG, QD
     Route: 065
  310. QUINAPRIL HYDROCHLORIDE [Interacting]
     Active Substance: QUINAPRIL HYDROCHLORIDE
     Indication: Insomnia
     Dosage: 40 MG, QD
     Route: 065
  311. QUINAPRIL HYDROCHLORIDE [Interacting]
     Active Substance: QUINAPRIL HYDROCHLORIDE
     Indication: Seizure prophylaxis
     Dosage: 40 MG, QD
     Route: 065
  312. QUINAPRIL HYDROCHLORIDE [Interacting]
     Active Substance: QUINAPRIL HYDROCHLORIDE
     Indication: Seizure
     Dosage: UNK
     Route: 065
  313. QUINAPRIL HYDROCHLORIDE [Interacting]
     Active Substance: QUINAPRIL HYDROCHLORIDE
     Indication: Pain
     Dosage: UNK
     Route: 065
  314. QUINAPRIL HYDROCHLORIDE [Interacting]
     Active Substance: QUINAPRIL HYDROCHLORIDE
     Dosage: 20 MG, QD
     Route: 065
  315. QUINAPRIL HYDROCHLORIDE [Interacting]
     Active Substance: QUINAPRIL HYDROCHLORIDE
     Dosage: 400 MG, QD
     Route: 065
  316. QUINAPRIL HYDROCHLORIDE [Interacting]
     Active Substance: QUINAPRIL HYDROCHLORIDE
     Dosage: 40 MG, QD
     Route: 065
  317. QUINAPRIL HYDROCHLORIDE [Interacting]
     Active Substance: QUINAPRIL HYDROCHLORIDE
     Dosage: 40 MG, QD
     Route: 065
  318. QUINAPRIL HYDROCHLORIDE [Interacting]
     Active Substance: QUINAPRIL HYDROCHLORIDE
     Dosage: 40 MG, QD
     Route: 065
  319. QUINAPRIL HYDROCHLORIDE [Interacting]
     Active Substance: QUINAPRIL HYDROCHLORIDE
     Dosage: 40 MG, QD
     Route: 065
  320. QUINAPRIL HYDROCHLORIDE [Interacting]
     Active Substance: QUINAPRIL HYDROCHLORIDE
     Dosage: 40 MG, QD
     Route: 065
  321. QUINAPRIL HYDROCHLORIDE [Interacting]
     Active Substance: QUINAPRIL HYDROCHLORIDE
     Dosage: 40 MG, QD
     Route: 065
  322. QUINAPRIL HYDROCHLORIDE [Interacting]
     Active Substance: QUINAPRIL HYDROCHLORIDE
     Dosage: 40 MG, QD
     Route: 065
  323. QUINAPRIL HYDROCHLORIDE [Interacting]
     Active Substance: QUINAPRIL HYDROCHLORIDE
     Dosage: 40 MG, QD
     Route: 065
  324. QUINAPRIL HYDROCHLORIDE [Interacting]
     Active Substance: QUINAPRIL HYDROCHLORIDE
     Dosage: 40 MG, QD
     Route: 065
  325. QUINAPRIL HYDROCHLORIDE [Interacting]
     Active Substance: QUINAPRIL HYDROCHLORIDE
     Dosage: 40 MG, QD
     Route: 065
  326. QUINAPRIL HYDROCHLORIDE [Interacting]
     Active Substance: QUINAPRIL HYDROCHLORIDE
     Dosage: 40 MG, QD
     Route: 065
  327. QUINAPRIL HYDROCHLORIDE [Interacting]
     Active Substance: QUINAPRIL HYDROCHLORIDE
     Dosage: 40 MG, QD
     Route: 065
  328. QUINAPRIL HYDROCHLORIDE [Interacting]
     Active Substance: QUINAPRIL HYDROCHLORIDE
     Dosage: 40 MG, QD
     Route: 065
  329. QUINAPRIL HYDROCHLORIDE [Interacting]
     Active Substance: QUINAPRIL HYDROCHLORIDE
     Dosage: 40 MG, QD
     Route: 065
  330. QUINAPRIL HYDROCHLORIDE [Interacting]
     Active Substance: QUINAPRIL HYDROCHLORIDE
     Dosage: 40 MG, QD
     Route: 065
  331. QUINAPRIL HYDROCHLORIDE [Interacting]
     Active Substance: QUINAPRIL HYDROCHLORIDE
     Dosage: 40 MG, QD
     Route: 065
  332. QUINAPRIL HYDROCHLORIDE [Interacting]
     Active Substance: QUINAPRIL HYDROCHLORIDE
     Dosage: 400 MG, QD
     Route: 065
  333. QUINAPRIL HYDROCHLORIDE [Interacting]
     Active Substance: QUINAPRIL HYDROCHLORIDE
     Dosage: 400 MG, QD
     Route: 065
  334. QUINAPRIL HYDROCHLORIDE [Interacting]
     Active Substance: QUINAPRIL HYDROCHLORIDE
     Dosage: 400 MG, QD
     Route: 065
  335. QUINAPRIL HYDROCHLORIDE [Interacting]
     Active Substance: QUINAPRIL HYDROCHLORIDE
     Dosage: 400 MG, QD
     Route: 065
  336. QUINAPRIL HYDROCHLORIDE [Interacting]
     Active Substance: QUINAPRIL HYDROCHLORIDE
     Dosage: 400 MG, QD
     Route: 065
  337. QUINAPRIL HYDROCHLORIDE [Interacting]
     Active Substance: QUINAPRIL HYDROCHLORIDE
     Dosage: 400 MG, QD
     Route: 065
  338. QUINAPRIL HYDROCHLORIDE [Interacting]
     Active Substance: QUINAPRIL HYDROCHLORIDE
     Dosage: 400 MG, QD
     Route: 065
  339. QUINAPRIL HYDROCHLORIDE [Interacting]
     Active Substance: QUINAPRIL HYDROCHLORIDE
     Dosage: 400 MG, QD
     Route: 065
  340. QUINAPRIL HYDROCHLORIDE [Interacting]
     Active Substance: QUINAPRIL HYDROCHLORIDE
     Dosage: 200 MG, Q12H
     Route: 065
  341. QUINAPRIL HYDROCHLORIDE [Interacting]
     Active Substance: QUINAPRIL HYDROCHLORIDE
     Dosage: 200 MG, Q12H
     Route: 065
  342. QUINAPRIL HYDROCHLORIDE [Interacting]
     Active Substance: QUINAPRIL HYDROCHLORIDE
     Dosage: 200 MG, Q12H
     Route: 065
  343. QUINAPRIL HYDROCHLORIDE [Interacting]
     Active Substance: QUINAPRIL HYDROCHLORIDE
     Dosage: 200 MG, Q12H
     Route: 065
  344. QUINAPRIL HYDROCHLORIDE [Interacting]
     Active Substance: QUINAPRIL HYDROCHLORIDE
     Dosage: 200 MG, Q12H
     Route: 065
  345. QUINAPRIL HYDROCHLORIDE [Interacting]
     Active Substance: QUINAPRIL HYDROCHLORIDE
     Dosage: 200 MG, Q12H
     Route: 065
  346. QUINAPRIL HYDROCHLORIDE [Interacting]
     Active Substance: QUINAPRIL HYDROCHLORIDE
     Dosage: 200 MG, Q12H
     Route: 065
  347. QUINAPRIL HYDROCHLORIDE [Interacting]
     Active Substance: QUINAPRIL HYDROCHLORIDE
     Dosage: 200 MG, Q12H
     Route: 065
  348. QUINAPRIL HYDROCHLORIDE [Interacting]
     Active Substance: QUINAPRIL HYDROCHLORIDE
     Dosage: 200 MG, Q12H
     Route: 065
  349. QUINAPRIL HYDROCHLORIDE [Interacting]
     Active Substance: QUINAPRIL HYDROCHLORIDE
     Dosage: 200 MG, Q12H
     Route: 065
  350. ALBUTEROL [Interacting]
     Active Substance: ALBUTEROL
     Indication: Hypertension
     Dosage: 10 MG, QID
     Route: 065
  351. ALBUTEROL [Interacting]
     Active Substance: ALBUTEROL
     Indication: Coronary artery disease
     Dosage: UNK
     Route: 065
  352. ALBUTEROL [Interacting]
     Active Substance: ALBUTEROL
     Indication: Chest pain
     Dosage: 100 MG, QD
     Route: 065
  353. ALBUTEROL [Interacting]
     Active Substance: ALBUTEROL
     Indication: Angina pectoris
     Dosage: 200 UG (1 EVERY 12 HOURS)
     Route: 065
  354. ALBUTEROL [Interacting]
     Active Substance: ALBUTEROL
     Dosage: 100 MG
     Route: 065
  355. ALBUTEROL [Interacting]
     Active Substance: ALBUTEROL
     Dosage: 400 MG, Q6H
     Route: 065
  356. ALBUTEROL [Interacting]
     Active Substance: ALBUTEROL
     Dosage: 800 MG, QD
     Route: 065
  357. ALBUTEROL [Interacting]
     Active Substance: ALBUTEROL
     Dosage: UNK
     Route: 065
  358. ALBUTEROL [Interacting]
     Active Substance: ALBUTEROL
     Dosage: 200 MG, Q8H
     Route: 065
  359. ALBUTEROL [Interacting]
     Active Substance: ALBUTEROL
     Dosage: 400 MG, QD
     Route: 065
  360. ALBUTEROL [Interacting]
     Active Substance: ALBUTEROL
     Dosage: 200 UG, 1 EVERY 6 HOURS
     Route: 065
  361. ALBUTEROL [Interacting]
     Active Substance: ALBUTEROL
     Dosage: 200 MG, Q6H
     Route: 065
  362. ALBUTEROL [Interacting]
     Active Substance: ALBUTEROL
     Dosage: UNK
     Route: 065
  363. ALBUTEROL [Interacting]
     Active Substance: ALBUTEROL
     Dosage: UNK
     Route: 065
  364. ALBUTEROL [Interacting]
     Active Substance: ALBUTEROL
     Dosage: UNK
     Route: 065
  365. ALBUTEROL [Interacting]
     Active Substance: ALBUTEROL
     Dosage: 200 MG, Q8H
     Route: 065
  366. ALBUTEROL [Interacting]
     Active Substance: ALBUTEROL
     Dosage: 200 MG, Q8H
     Route: 065
  367. ALBUTEROL [Interacting]
     Active Substance: ALBUTEROL
     Dosage: 200 MG, Q8H
     Route: 065
  368. ALBUTEROL [Interacting]
     Active Substance: ALBUTEROL
     Dosage: 200 MG, Q8H
     Route: 065
  369. ALBUTEROL [Interacting]
     Active Substance: ALBUTEROL
     Dosage: 100 MG, QD (1 EVERY 24 HOURS)
     Route: 065
  370. ALBUTEROL [Interacting]
     Active Substance: ALBUTEROL
     Dosage: 100 MG, QD (1 EVERY 24 HOURS)
     Route: 065
  371. ALBUTEROL [Interacting]
     Active Substance: ALBUTEROL
     Dosage: 100 MG, QD
     Route: 065
  372. ALBUTEROL [Interacting]
     Active Substance: ALBUTEROL
     Dosage: 100 MG, QD
     Route: 065
  373. ALBUTEROL [Interacting]
     Active Substance: ALBUTEROL
     Dosage: 400 MG, QD (1 EVERY 24 HOURS)
     Route: 065
  374. ALBUTEROL [Interacting]
     Active Substance: ALBUTEROL
     Dosage: 400 MG, QD
     Route: 065
  375. ALBUTEROL [Interacting]
     Active Substance: ALBUTEROL
     Dosage: 400 MG, QD
     Route: 065
  376. ALBUTEROL [Interacting]
     Active Substance: ALBUTEROL
     Dosage: 400 MG, QD
     Route: 065
  377. ALBUTEROL [Interacting]
     Active Substance: ALBUTEROL
     Dosage: 200 MG, Q8H
     Route: 065
  378. ALBUTEROL [Interacting]
     Active Substance: ALBUTEROL
     Dosage: 200 MG, Q6H
     Route: 065
  379. ALBUTEROL [Interacting]
     Active Substance: ALBUTEROL
     Dosage: 200 MG, Q6H
     Route: 065
  380. ALBUTEROL [Interacting]
     Active Substance: ALBUTEROL
     Dosage: 200 MG, Q6H
     Route: 065
  381. ALBUTEROL [Interacting]
     Active Substance: ALBUTEROL
     Dosage: 200 MG, Q6H
     Route: 065
  382. ALBUTEROL [Interacting]
     Active Substance: ALBUTEROL
     Dosage: 200 MG, Q6H
     Route: 065
  383. ALBUTEROL [Interacting]
     Active Substance: ALBUTEROL
     Dosage: 200 MG, Q6H
     Route: 065
  384. ALBUTEROL [Interacting]
     Active Substance: ALBUTEROL
     Dosage: 200 MG, Q6H
     Route: 065
  385. ALBUTEROL [Interacting]
     Active Substance: ALBUTEROL
     Dosage: 200 MG, Q6H
     Route: 065
  386. ALBUTEROL [Interacting]
     Active Substance: ALBUTEROL
     Dosage: 800 MG, QD (1 EVERY 24 HOURS)
     Route: 065
  387. ALBUTEROL [Interacting]
     Active Substance: ALBUTEROL
     Dosage: 800 MG, QD
     Route: 065
  388. ALBUTEROL [Interacting]
     Active Substance: ALBUTEROL
     Dosage: 800 MG, QD
     Route: 065
  389. ALBUTEROL [Interacting]
     Active Substance: ALBUTEROL
     Dosage: 800 MG, QD
     Route: 065
  390. ALBUTEROL [Interacting]
     Active Substance: ALBUTEROL
     Dosage: 400 MG, Q6H
     Route: 065
  391. ALBUTEROL [Interacting]
     Active Substance: ALBUTEROL
     Dosage: 400 MG, Q6H
     Route: 065
  392. ALBUTEROL [Interacting]
     Active Substance: ALBUTEROL
     Dosage: 400 MG, Q6H
     Route: 065
  393. ALBUTEROL [Interacting]
     Active Substance: ALBUTEROL
     Dosage: 400 MG, Q6H
     Route: 065
  394. ALBUTEROL [Interacting]
     Active Substance: ALBUTEROL
     Dosage: 18 MG, QD
     Route: 065
  395. ALBUTEROL [Interacting]
     Active Substance: ALBUTEROL
     Dosage: 18 MG, QD
     Route: 065
  396. ALBUTEROL [Interacting]
     Active Substance: ALBUTEROL
     Dosage: 18 MG, QD
     Route: 065
  397. ALBUTEROL [Interacting]
     Active Substance: ALBUTEROL
     Dosage: 18 MG, QD
     Route: 065
  398. ALBUTEROL [Interacting]
     Active Substance: ALBUTEROL
     Dosage: 18 MG, QD
     Route: 065
  399. ALBUTEROL [Interacting]
     Active Substance: ALBUTEROL
     Dosage: 200 MG, Q12H
     Route: 065
  400. TIOTROPIUM BROMIDE MONOHYDRATE [Interacting]
     Active Substance: TIOTROPIUM BROMIDE MONOHYDRATE
     Indication: Chronic obstructive pulmonary disease
     Dosage: 18 MG, QD
     Route: 065
  401. TIOTROPIUM BROMIDE MONOHYDRATE [Interacting]
     Active Substance: TIOTROPIUM BROMIDE MONOHYDRATE
     Indication: Asthma
     Dosage: UNK
     Route: 065
  402. TIOTROPIUM BROMIDE MONOHYDRATE [Interacting]
     Active Substance: TIOTROPIUM BROMIDE MONOHYDRATE
     Dosage: UNK
     Route: 065
  403. CRANBERRY [Interacting]
     Active Substance: CRANBERRY
     Indication: Bladder disorder
     Dosage: UNK
     Route: 065
  404. CRANBERRY [Interacting]
     Active Substance: CRANBERRY
     Dosage: UNK
     Route: 065
  405. CRANBERRY [Interacting]
     Active Substance: CRANBERRY
     Dosage: 500 MG (1 EVERY 8 HOURS)
     Route: 065
  406. CRANBERRY [Interacting]
     Active Substance: CRANBERRY
     Dosage: 500 MG
     Route: 065
  407. BISACODYL [Interacting]
     Active Substance: BISACODYL
     Indication: Constipation
     Dosage: UNK
     Route: 065
  408. BISACODYL [Interacting]
     Active Substance: BISACODYL
     Dosage: 2 DOSAGE FORM, QD
     Route: 065
  409. BISACODYL [Interacting]
     Active Substance: BISACODYL
     Dosage: 1 DOSAGE FORM, QD
     Route: 065
  410. CALCIUM CARBONATE [Interacting]
     Active Substance: CALCIUM CARBONATE
     Indication: Product used for unknown indication
     Dosage: UNK
     Route: 065
  411. AMITRIPTYLINE HYDROCHLORIDE [Interacting]
     Active Substance: AMITRIPTYLINE HYDROCHLORIDE
     Indication: Insomnia
     Dosage: 75 MG
     Route: 065
  412. AMITRIPTYLINE HYDROCHLORIDE [Interacting]
     Active Substance: AMITRIPTYLINE HYDROCHLORIDE
     Dosage: UNK
     Route: 065
  413. OXCARBAZEPINE [Interacting]
     Active Substance: OXCARBAZEPINE
     Indication: Product used for unknown indication
     Dosage: UNK
     Route: 065
  414. PERSANTINE [Interacting]
     Active Substance: DIPYRIDAMOLE
     Indication: Cerebrovascular accident
     Dosage: UNK, QD
     Route: 065
  415. PERSANTINE [Interacting]
     Active Substance: DIPYRIDAMOLE
     Dosage: UNK
     Route: 065
  416. CYCLOBENZAPRINE [Interacting]
     Active Substance: CYCLOBENZAPRINE
     Indication: Fibromyalgia
     Dosage: 5 MG, Q8H
     Route: 065
  417. CYCLOBENZAPRINE [Interacting]
     Active Substance: CYCLOBENZAPRINE
     Dosage: UNK
     Route: 065
  418. DILTIAZEM HYDROCHLORIDE [Interacting]
     Active Substance: DILTIAZEM HYDROCHLORIDE
     Indication: Hypertension
     Dosage: 500 MG, QD
     Route: 065
  419. DILTIAZEM HYDROCHLORIDE [Interacting]
     Active Substance: DILTIAZEM HYDROCHLORIDE
     Indication: Coronary artery disease
     Dosage: 360 MG, QD
     Route: 065
  420. DILTIAZEM HYDROCHLORIDE [Interacting]
     Active Substance: DILTIAZEM HYDROCHLORIDE
     Indication: Chest pain
     Dosage: UNK
     Route: 065
  421. DILTIAZEM HYDROCHLORIDE [Interacting]
     Active Substance: DILTIAZEM HYDROCHLORIDE
     Indication: Angina pectoris
     Dosage: 500 MG, QD
     Route: 065
  422. DILTIAZEM HYDROCHLORIDE [Interacting]
     Active Substance: DILTIAZEM HYDROCHLORIDE
     Dosage: 500 MG, QD
     Route: 065
  423. DILTIAZEM HYDROCHLORIDE [Interacting]
     Active Substance: DILTIAZEM HYDROCHLORIDE
     Dosage: 500 MG, QD
     Route: 065
  424. DILTIAZEM HYDROCHLORIDE [Interacting]
     Active Substance: DILTIAZEM HYDROCHLORIDE
     Dosage: 360 MG, QD
     Route: 065
  425. DILTIAZEM HYDROCHLORIDE [Interacting]
     Active Substance: DILTIAZEM HYDROCHLORIDE
     Dosage: 360 MG, QD
     Route: 065
  426. DILTIAZEM HYDROCHLORIDE [Interacting]
     Active Substance: DILTIAZEM HYDROCHLORIDE
     Dosage: 360 MG, QD
     Route: 065
  427. DILTIAZEM HYDROCHLORIDE [Interacting]
     Active Substance: DILTIAZEM HYDROCHLORIDE
     Dosage: UNK
     Route: 065
  428. DILTIAZEM HYDROCHLORIDE [Interacting]
     Active Substance: DILTIAZEM HYDROCHLORIDE
     Dosage: UNK
     Route: 065
  429. DILTIAZEM HYDROCHLORIDE [Interacting]
     Active Substance: DILTIAZEM HYDROCHLORIDE
     Dosage: UNK
     Route: 065
  430. CRANBERRY [Interacting]
     Active Substance: CRANBERRY
     Indication: Bladder disorder
     Dosage: UNK
     Route: 065
  431. CRANBERRY [Interacting]
     Active Substance: CRANBERRY
     Dosage: 500 MG, Q8H
     Route: 065
  432. VITAMIN C [Concomitant]
     Active Substance: ASCORBIC ACID
     Indication: Product used for unknown indication
     Dosage: UNK
     Route: 065
  433. ZINC [Concomitant]
     Active Substance: ZINC
     Indication: Product used for unknown indication
     Dosage: UNK
     Route: 065
  434. HERBALS\PLANTAGO OVATA LEAF [Concomitant]
     Active Substance: HERBALS\PLANTAGO OVATA LEAF
     Indication: Product used for unknown indication
     Dosage: UNK
     Route: 065
  435. FRUCTOSE [Concomitant]
     Active Substance: FRUCTOSE
     Indication: Product used for unknown indication
     Dosage: UNK
     Route: 065
  436. ASPIRIN [Concomitant]
     Active Substance: ASPIRIN
     Indication: Hypertension
     Dosage: UNK
     Route: 065
  437. ASPIRIN [Concomitant]
     Active Substance: ASPIRIN
     Indication: Coronary artery disease
  438. ASPIRIN [Concomitant]
     Active Substance: ASPIRIN
     Indication: Angina pectoris
  439. ASCORBIC ACID [Concomitant]
     Active Substance: ASCORBIC ACID
     Indication: Product used for unknown indication
     Dosage: UNK
     Route: 065
  440. CALCIUM ASCORBATE [Concomitant]
     Active Substance: CALCIUM ASCORBATE
     Indication: Product used for unknown indication
     Dosage: UNK
     Route: 065
  441. ASPIRIN [Concomitant]
     Active Substance: ASPIRIN
     Indication: Product used for unknown indication
     Dosage: UNK
     Route: 065
  442. ASPIRIN [Concomitant]
     Active Substance: ASPIRIN
     Dosage: UNK
     Route: 048
  443. CALCIUM POLYCARBOPHIL [Concomitant]
     Active Substance: CALCIUM POLYCARBOPHIL
     Indication: Product used for unknown indication
     Dosage: UNK
     Route: 065

REACTIONS (8)
  - Cognitive disorder [Recovered/Resolved]
  - Balance disorder [Recovered/Resolved]
  - Orthostatic hypotension [Recovered/Resolved]
  - Toxicity to various agents [Recovered/Resolved]
  - Sedation [Recovered/Resolved]
  - Constipation [Recovered/Resolved]
  - Fall [Recovered/Resolved]
  - Hypotension [Recovered/Resolved]
